FAERS Safety Report 5557877-6 (Version None)
Quarter: 2007Q4

REPORT INFORMATION
  Report Type: 
  Country: None (occurrence: None)
  Receive Date: 20071214
  Receipt Date: 20071125
  Transmission Date: 20080405
  Serious: Yes (Hospitalization)
  Sender: FDA-Public Use
  Company Number: US-BAYER-200714679NA

PATIENT
  Age: 57 Year
  Sex: Female

DRUGS (1)
  1. BETASERON [Suspect]
     Indication: MULTIPLE SCLEROSIS
     Dosage: TOTAL DAILY DOSE: 4 MIU
     Route: 058
     Dates: start: 20070524

REACTIONS (3)
  - APPENDICITIS [None]
  - DRUG DOSE OMISSION [None]
  - INCISION SITE PAIN [None]
